FAERS Safety Report 14154616 (Version 3)
Quarter: 2019Q2

REPORT INFORMATION
  Report Type: Spontaneous
  Country: US (occurrence: US)
  Receive Date: 20171102
  Receipt Date: 20190528
  Transmission Date: 20190711
  Serious: No
  Sender: FDA-Public Use
  Company Number: US-ACTELION-A-US2017-161841

PATIENT
  Age: 73 Year
  Sex: Female
  Weight: 45.81 kg

DRUGS (4)
  1. WARFARIN [Concomitant]
     Active Substance: WARFARIN
  2. REVATIO [Concomitant]
     Active Substance: SILDENAFIL CITRATE
  3. TRACLEER [Suspect]
     Active Substance: BOSENTAN
     Indication: PULMONARY HYPERTENSION
     Dosage: 62.5 MG, BID
     Route: 048
  4. TRACLEER [Suspect]
     Active Substance: BOSENTAN
     Dosage: 125 MG, BID
     Route: 048

REACTIONS (5)
  - Sluggishness [Unknown]
  - Product dose omission [Unknown]
  - Oxygen saturation abnormal [Unknown]
  - Nasopharyngitis [Unknown]
  - Dyspnoea [Unknown]

NARRATIVE: CASE EVENT DATE: 20180101
